FAERS Safety Report 9813578 (Version 4)
Quarter: 2014Q1

REPORT INFORMATION
  Report Type: Spontaneous
  Country: US (occurrence: US)
  Receive Date: 20140113
  Receipt Date: 20140204
  Transmission Date: 20141002
  Serious: Yes (Hospitalization)
  Sender: FDA-Public Use
  Company Number: US-GILEAD-2014-0091988

PATIENT
  Age: 79 Year
  Sex: Female

DRUGS (1)
  1. LETAIRIS [Suspect]
     Indication: PRODUCT USED FOR UNKNOWN INDICATION
     Dosage: 5 MG, QD
     Route: 065
     Dates: start: 20110729

REACTIONS (5)
  - Heart rate increased [Unknown]
  - Unevaluable event [Unknown]
  - Palpitations [Unknown]
  - Anaemia [Unknown]
  - Oedema peripheral [Unknown]
